FAERS Safety Report 5939315-4 (Version None)
Quarter: 2008Q4

REPORT INFORMATION
  Report Type: 
  Country: None (occurrence: None)
  Receive Date: 20081103
  Receipt Date: 20081027
  Transmission Date: 20090506
  Serious: Yes (Hospitalization)
  Sender: FDA-Public Use
  Company Number: US-AMGEN-QUU298363

PATIENT
  Sex: Female

DRUGS (15)
  1. ENBREL [Suspect]
  2. METHOTREXATE [Concomitant]
  3. GLUCOSAMINE [Concomitant]
  4. CELEBREX [Concomitant]
  5. PREMARIN [Concomitant]
  6. MULTI-VITAMINS [Concomitant]
  7. FOLIC ACID [Concomitant]
  8. ATENOLOL [Concomitant]
  9. HUMIRA [Concomitant]
  10. CELEXA [Concomitant]
  11. METFORMIN HCL [Concomitant]
  12. ASPIRIN [Concomitant]
  13. LORATADINE [Concomitant]
  14. PREVACID [Concomitant]
  15. ENALAPRIL MALEATE [Concomitant]

REACTIONS (4)
  - CEREBROVASCULAR ACCIDENT [None]
  - CORONARY ARTERY BYPASS [None]
  - DYSPNOEA [None]
  - MYOCARDIAL INFARCTION [None]
